FAERS Safety Report 6093179-X (Version None)
Quarter: 2009Q1

REPORT INFORMATION
  Report Type: 
  Country: None (occurrence: None)
  Receive Date: 20090223
  Receipt Date: 20090211
  Transmission Date: 20090719
  Serious: Yes (Hospitalization)
  Sender: FDA-Public Use
  Company Number: US025446

PATIENT
  Age: 41 Year
  Sex: Female

DRUGS (1)
  1. MODAFINIL [Suspect]
     Indication: NARCOLEPSY
     Dosage: 100 MG TID ORAL
     Route: 048
     Dates: start: 20030101

REACTIONS (8)
  - ADRENERGIC SYNDROME [None]
  - BLOOD CHOLESTEROL INCREASED [None]
  - HYPERHIDROSIS [None]
  - HYPOGLYCAEMIA [None]
  - MALAISE [None]
  - PALLOR [None]
  - PARAESTHESIA [None]
  - WEIGHT INCREASED [None]
